FAERS Safety Report 6752785-7 (Version None)
Quarter: 2010Q2

REPORT INFORMATION
  Report Type: 
  Country: None (occurrence: None)
  Receive Date: 20100602
  Receipt Date: 20100602
  Transmission Date: 20101027
  Serious: Yes (Other)
  Sender: FDA-Public Use
  Company Number: None

PATIENT
  Sex: Female
  Weight: 63.5036 kg

DRUGS (1)
  1. XALATAN [Suspect]
     Indication: GLAUCOMA
     Dosage: ONE DROP DAILY

REACTIONS (4)
  - ANGINA PECTORIS [None]
  - HEART RATE IRREGULAR [None]
  - HYPERTENSION [None]
  - PRODUCT QUALITY ISSUE [None]
